FAERS Safety Report 6557159-X (Version None)
Quarter: 2010Q1

REPORT INFORMATION
  Report Type: 
  Country: None (occurrence: None)
  Receive Date: 20100127
  Receipt Date: 20100127
  Transmission Date: 20100710
  Serious: Yes (Other)
  Sender: FDA-Public Use
  Company Number: None

PATIENT
  Age: 58 Year
  Sex: Female
  Weight: 72.5755 kg

DRUGS (1)
  1. ROLAIDS [Suspect]
     Indication: HYPERCHLORHYDRIA
     Dosage: 1-2 TABLETS 2 TIMES A DAY PO
     Route: 048
     Dates: start: 20091110, end: 20091218

REACTIONS (1)
  - ABDOMINAL PAIN UPPER [None]
